FAERS Safety Report 14382955 (Version 1)
Quarter: 2018Q1

REPORT INFORMATION
  Report Type: Spontaneous
  Country: JP (occurrence: JP)
  Receive Date: 20180114
  Receipt Date: 20180114
  Transmission Date: 20180509
  Serious: Yes (Other)
  Sender: FDA-Public Use
  Company Number: JP-TEVA-2018-JP-843718

PATIENT
  Age: 23 Year
  Sex: Male
  Weight: 62 kg

DRUGS (1)
  1. PREDNISOLONE. [Suspect]
     Active Substance: PREDNISOLONE
     Indication: APLASIA PURE RED CELL
     Dosage: STARTED RECEIVING DRUG AT 20MG AT THE AGE OF 21 YEARS WHICH WAS GRADUALLY LOWERED
     Route: 065

REACTIONS (3)
  - Osteonecrosis [Unknown]
  - Bone density decreased [Unknown]
  - Tonsillitis [Unknown]
